FAERS Safety Report 8616739-8 (Version None)
Quarter: 2012Q3

REPORT INFORMATION
  Report Type: 
  Country: None (occurrence: None)
  Receive Date: 20120823
  Receipt Date: 20120817
  Transmission Date: 20120928
  Serious: Yes (Hospitalization, Other)
  Sender: FDA-Public Use
  Company Number: US-MERCK-1111USA02488

PATIENT

DRUGS (10)
  1. ATACAND [Concomitant]
     Dates: start: 19900101, end: 20101101
  2. SYNTHROID [Concomitant]
     Indication: HYPOTHYROIDISM
     Dates: start: 19950101
  3. ASMANEX TWISTHALER [Concomitant]
     Indication: ASTHMA
     Dates: start: 19950101, end: 20101201
  4. ALENDRONATE SODIUM [Suspect]
     Indication: OSTEOPOROSIS
     Dosage: 70 MG, UNK
     Route: 048
     Dates: start: 20080101, end: 20100101
  5. PROZAC [Concomitant]
     Indication: DEPRESSION
     Dates: start: 19900101
  6. SYMBICORT [Concomitant]
     Indication: ASTHMA
     Dates: start: 20101201
  7. BONIVA [Suspect]
     Indication: OSTEOPOROSIS
     Dosage: 150 MG, UNK
     Route: 048
     Dates: start: 20060101, end: 20080101
  8. PROAIR (ALBUTEROL SULFATE) [Concomitant]
     Indication: ASTHMA
     Dates: start: 19950101
  9. FOSAMAX [Suspect]
     Indication: OSTEOPOROSIS
     Dosage: 10 MG, UNK
     Route: 048
     Dates: start: 20000101, end: 20100101
  10. FOSAMAX [Suspect]
     Dosage: 70 MG, QW
     Route: 048

REACTIONS (35)
  - OSTEOMYELITIS [None]
  - TOOTH DISORDER [None]
  - BRONCHITIS [None]
  - RHEUMATIC FEVER [None]
  - PERIODONTAL DISEASE [None]
  - TENDONITIS [None]
  - BILIARY COLIC [None]
  - SYNCOPE [None]
  - LUNG DISORDER [None]
  - JOINT INJURY [None]
  - ANAL FISTULA [None]
  - PRURITUS [None]
  - GINGIVAL HYPERPLASIA [None]
  - BACK DISORDER [None]
  - ORAL INFECTION [None]
  - DENTAL CARIES [None]
  - GALLBLADDER DISORDER [None]
  - PERIODONTITIS [None]
  - HAEMORRHOIDAL HAEMORRHAGE [None]
  - EYE DISORDER [None]
  - CHOLELITHIASIS [None]
  - ALOPECIA [None]
  - JOINT EFFUSION [None]
  - ANXIETY [None]
  - FEAR [None]
  - ARTHROPATHY [None]
  - ASTHENIA [None]
  - GASTROOESOPHAGEAL REFLUX DISEASE [None]
  - OSTEOPENIA [None]
  - CHOLECYSTECTOMY [None]
  - OSTEONECROSIS OF JAW [None]
  - GINGIVAL BLEEDING [None]
  - OSTEOARTHRITIS [None]
  - BODY HEIGHT DECREASED [None]
  - GENERAL PHYSICAL HEALTH DETERIORATION [None]
